FAERS Safety Report 25473494 (Version 1)
Quarter: 2025Q2

REPORT INFORMATION
  Report Type: Spontaneous
  Country: US (occurrence: US)
  Receive Date: 20250624
  Receipt Date: 20250624
  Transmission Date: 20250717
  Serious: No
  Sender: PFIZER
  Company Number: US-PFIZER INC-202500126018

PATIENT
  Sex: Female

DRUGS (1)
  1. NARDIL [Interacting]
     Active Substance: PHENELZINE SULFATE

REACTIONS (4)
  - Labelled drug-food interaction issue [Unknown]
  - Renal pain [Unknown]
  - Intentional product use issue [Unknown]
  - Diet noncompliance [Unknown]
